FAERS Safety Report 16790860 (Version 1)
Quarter: 2019Q3

REPORT INFORMATION
  Report Type: Spontaneous
  Country: GB (occurrence: GB)
  Receive Date: 20190910
  Receipt Date: 20190910
  Transmission Date: 20191005
  Serious: Yes (Other)
  Sender: FDA-Public Use
  Company Number: GB-MYLANLABS-2019M1084111

PATIENT
  Age: 38 Year
  Sex: Female

DRUGS (2)
  1. NORTRIPTYLINE [Suspect]
     Active Substance: NORTRIPTYLINE
     Indication: VULVOVAGINAL PAIN
     Dosage: STRENGTH: 10 MG FREQUENCY: TWICE DAILY
     Route: 048
  2. GABAPENTIN. [Concomitant]
     Active Substance: GABAPENTIN
     Indication: VULVOVAGINAL PAIN
     Dosage: UNK
     Dates: start: 201809

REACTIONS (5)
  - Dysuria [Not Recovered/Not Resolved]
  - Off label use [Unknown]
  - Hypersensitivity [Not Recovered/Not Resolved]
  - Suicidal ideation [Not Recovered/Not Resolved]
  - Condition aggravated [Not Recovered/Not Resolved]
